FAERS Safety Report 24822473 (Version 1)
Quarter: 2025Q1

REPORT INFORMATION
  Report Type: Spontaneous
  Country: SK (occurrence: SK)
  Receive Date: 20250109
  Receipt Date: 20250109
  Transmission Date: 20250409
  Serious: Yes (Other)
  Sender: AUROBINDO
  Company Number: SK-GLENMARK PHARMACEUTICALS-2024GMK096154

PATIENT
  Age: 37 Year
  Sex: Female

DRUGS (7)
  1. OLANZAPINE [Suspect]
     Active Substance: OLANZAPINE
     Indication: Withdrawal syndrome
     Dosage: 20 MILLIGRAM, ONCE A DAY
     Route: 065
  2. DIAZEPAM [Suspect]
     Active Substance: DIAZEPAM
     Indication: Withdrawal syndrome
     Dosage: 100 MILLIGRAM, ONCE A DAY
     Route: 065
  3. HALOPERIDOL [Suspect]
     Active Substance: HALOPERIDOL
     Indication: Withdrawal syndrome
     Dosage: 4.5 MILLIGRAM, ONCE A DAY
     Route: 065
  4. CANNABIS SATIVA SUBSP. INDICA TOP [Concomitant]
     Active Substance: CANNABIS SATIVA SUBSP. INDICA TOP
     Indication: Product used for unknown indication
     Route: 065
  5. COCAINE [Concomitant]
     Active Substance: COCAINE
     Indication: Product used for unknown indication
     Route: 065
  6. MIDOMAFETAMINE [Concomitant]
     Active Substance: MIDOMAFETAMINE
     Indication: Product used for unknown indication
     Route: 065
  7. ALPRAZOLAM [Concomitant]
     Active Substance: ALPRAZOLAM
     Indication: Withdrawal syndrome
     Route: 065

REACTIONS (5)
  - Depressed level of consciousness [Unknown]
  - Psychomotor retardation [Unknown]
  - Transaminases increased [Recovering/Resolving]
  - Drug ineffective [Unknown]
  - Off label use [Unknown]
